FAERS Safety Report 4376313-9 (Version None)
Quarter: 2004Q2

REPORT INFORMATION
  Report Type: 
  Country: None (occurrence: None)
  Receive Date: 20040608
  Receipt Date: 20030124
  Transmission Date: 20050107
  Serious: Yes (Life-Threatening, Other)
  Sender: FDA-Public Use
  Company Number: 200310331BCC

PATIENT
  Sex: Male

DRUGS (3)
  1. ALEVE [Suspect]
     Indication: ARTHRITIS
     Dosage: 440 MG, TID, ORAL; 220 MG, QD, ORAL
     Route: 048
     Dates: start: 20020401
  2. ELEMENTAL IRON [Concomitant]
  3. VIOXX [Concomitant]

REACTIONS (1)
  - RENAL FAILURE ACUTE [None]
